FAERS Safety Report 9103670 (Version 1)
Quarter: 2013Q1

REPORT INFORMATION
  Report Type: Spontaneous
  Country: KR (occurrence: KR)
  Receive Date: 20130219
  Receipt Date: 20130219
  Transmission Date: 20140127
  Serious: Yes (Death)
  Sender: FDA-Public Use
  Company Number: KR-JNJFOC-20130209672

PATIENT
  Sex: Male

DRUGS (2)
  1. FINIBAX [Suspect]
     Indication: PNEUMONIA
     Route: 041
     Dates: start: 20120331, end: 20120404
  2. VANCOMYCIN HCL [Concomitant]
     Indication: PRODUCT USED FOR UNKNOWN INDICATION
     Route: 042
     Dates: start: 20120331, end: 20120403

REACTIONS (1)
  - Lung neoplasm malignant [Fatal]
